FAERS Safety Report 8467343-6 (Version None)
Quarter: 2012Q2

REPORT INFORMATION
  Report Type: 
  Country: None (occurrence: None)
  Receive Date: 20120626
  Receipt Date: 20120621
  Transmission Date: 20120825
  Serious: No
  Sender: FDA-Public Use
  Company Number: US-BAYER-2012-062391

PATIENT
  Age: 44 Year
  Sex: Female

DRUGS (2)
  1. ATIVAN [Concomitant]
  2. AVELOX [Suspect]
     Indication: SINUSITIS

REACTIONS (5)
  - DYSPHAGIA [None]
  - MUSCLE TIGHTNESS [None]
  - NECK PAIN [None]
  - MUSCULAR WEAKNESS [None]
  - TREMOR [None]
